FAERS Safety Report 5095906-7 (Version None)
Quarter: 2006Q3

REPORT INFORMATION
  Report Type: 
  Country: None (occurrence: None)
  Receive Date: 20060731
  Receipt Date: 20060419
  Transmission Date: 20061208
  Serious: No
  Sender: FDA-Public Use
  Company Number: 2006PV012332

PATIENT
  Age: 53 Year
  Sex: Male
  Weight: 163.2949 kg

DRUGS (4)
  1. BYETTA [Suspect]
     Indication: DIABETES MELLITUS NON-INSULIN-DEPENDENT
     Dosage: 5 MCG;BID;SC
     Route: 058
     Dates: start: 20060320
  2. CORTISONE [Suspect]
     Indication: DRUG USE FOR UNKNOWN INDICATION
     Dosage: X1;SC
     Route: 058
     Dates: start: 20060418, end: 20060418
  3. AMARYL [Concomitant]
  4. NOVOLIN 70/30 [Concomitant]

REACTIONS (1)
  - BLOOD GLUCOSE INCREASED [None]
